FAERS Safety Report 7063074-8 (Version None)
Quarter: 2010Q4

REPORT INFORMATION
  Report Type: 
  Country: None (occurrence: None)
  Receive Date: 20101026
  Receipt Date: 20100412
  Transmission Date: 20110411
  Serious: No
  Sender: FDA-Public Use
  Company Number: US-PFIZER INC-2010046656

PATIENT
  Age: 65 Year
  Sex: Male
  Weight: 127 kg

DRUGS (3)
  1. LIPITOR [Suspect]
     Indication: BLOOD CHOLESTEROL INCREASED
     Dosage: 20 MG, DAILY
  2. LISINOPRIL [Concomitant]
     Indication: HYPERTENSION
     Dosage: UNK
  3. ATENOLOL [Concomitant]
     Indication: HYPERTENSION
     Dosage: UNK

REACTIONS (2)
  - DIARRHOEA [None]
  - URINARY TRACT DISORDER [None]
